FAERS Safety Report 22659767 (Version 5)
Quarter: 2023Q4

REPORT INFORMATION
  Report Type: Report from Study
  Country: CA (occurrence: CA)
  Receive Date: 20230630
  Receipt Date: 20231006
  Transmission Date: 20240110
  Serious: Yes (Other)
  Sender: FDA-Public Use
  Company Number: CA-ABBVIE-5310196

PATIENT
  Age: 59 Year
  Sex: Female

DRUGS (53)
  1. VENCLEXTA [Suspect]
     Active Substance: VENETOCLAX
     Indication: Acute myeloid leukaemia
     Route: 048
     Dates: start: 20230227, end: 20230326
  2. VENCLEXTA [Suspect]
     Active Substance: VENETOCLAX
     Indication: Acute myeloid leukaemia
     Route: 048
     Dates: start: 20230327, end: 20230423
  3. VENCLEXTA [Suspect]
     Active Substance: VENETOCLAX
     Indication: Acute myeloid leukaemia
     Route: 048
     Dates: start: 20230216, end: 20230217
  4. COVID-19 vaccine mRNA [Concomitant]
     Indication: COVID-19 prophylaxis
     Dosage: 5 DOSES
  5. COVID-19 vaccine mRNA [Concomitant]
     Indication: COVID-19 prophylaxis
     Dosage: SECOND DOSE?5 DOSES, COVID VACCINE (MRNA
  6. COVID-19 vaccine mRNA [Concomitant]
     Indication: COVID-19 prophylaxis
     Dosage: THIRD DOSE?5 DOSES, COVID VACCINE (MRNA
  7. COVID-19 vaccine mRNA [Concomitant]
     Indication: COVID-19 prophylaxis
     Dosage: FOURTH DOSE?5 DOSES, COVID VACCINE (MRNA
  8. COVID-19 vaccine mRNA [Concomitant]
     Indication: COVID-19 prophylaxis
     Dosage: FIFTH DOSE?5 DOSES, COVID VACCINE (MRNA
  9. BENDAMUSTINE;OBINUTUZUMAB [Concomitant]
     Indication: Product used for unknown indication
     Dosage: BEND/OBIN
     Route: 065
  10. CISPLATIN [Concomitant]
     Active Substance: CISPLATIN
     Indication: Product used for unknown indication
  11. AZACITIDINE [Suspect]
     Active Substance: AZACITIDINE
     Indication: Product used for unknown indication
     Route: 065
     Dates: start: 20230327, end: 20230404
  12. AZACITIDINE [Suspect]
     Active Substance: AZACITIDINE
     Indication: Product used for unknown indication
     Route: 065
     Dates: start: 20230204, end: 20230210
  13. AZACITIDINE [Suspect]
     Active Substance: AZACITIDINE
     Indication: Product used for unknown indication
     Route: 065
     Dates: start: 20230227, end: 20230307
  14. SUCRALFATE [Concomitant]
     Active Substance: SUCRALFATE
     Indication: Mucosal inflammation
     Dosage: SULCRATE PLUS
     Route: 048
     Dates: start: 20230327, end: 20230424
  15. DEXAMETHASONE [Concomitant]
     Active Substance: DEXAMETHASONE
     Indication: Product used for unknown indication
  16. GEMCITABINE [Concomitant]
     Active Substance: GEMCITABINE
     Indication: Product used for unknown indication
     Dates: start: 201904
  17. BENZYDAMINE HYDROCHLORIDE [Concomitant]
     Active Substance: BENZYDAMINE HYDROCHLORIDE
     Indication: Mucosal inflammation
     Dosage: 1  LID CUP
     Route: 048
     Dates: start: 20230425
  18. MORPHINE SULFATE [Concomitant]
     Active Substance: MORPHINE SULFATE
     Indication: Pain
     Dosage: MORPHINE SULPHATE (STATEX), FREQUENCY TEXT: ONCE
     Route: 048
     Dates: start: 20230424, end: 20230425
  19. VITAMIN D [Concomitant]
     Active Substance: VITAMIN D NOS
     Indication: Product used for unknown indication
     Route: 048
     Dates: start: 20230425
  20. NYSTATIN [Concomitant]
     Active Substance: NYSTATIN
     Indication: Stomatitis
     Dosage: FREQUENCY TEXT: ONCE
     Dates: start: 20230424, end: 20230424
  21. CYTARABINE\DAUNORUBICIN [Concomitant]
     Active Substance: CYTARABINE\DAUNORUBICIN
     Indication: Acute myeloid leukaemia
     Dosage: DAUNORUBICIN CYTARABINE LIPOSOME?FREQUENCY TEXT: ONCE
     Route: 048
     Dates: start: 20230502, end: 20230502
  22. CYTARABINE\DAUNORUBICIN [Concomitant]
     Active Substance: CYTARABINE\DAUNORUBICIN
     Indication: Acute myeloid leukaemia
     Dosage: DAUNORUBICIN CYTARABINE LIPOSOME?FREQUENCY TEXT: ONCE
     Route: 042
     Dates: start: 20230430, end: 20230530
  23. CYTARABINE\DAUNORUBICIN [Concomitant]
     Active Substance: CYTARABINE\DAUNORUBICIN
     Indication: Acute myeloid leukaemia
     Dosage: DAUNORUBICIN CYTARABINE LIPOSOME?FREQUENCY TEXT: ONCE
     Route: 042
     Dates: start: 20230428, end: 20230428
  24. SEPTRA [Concomitant]
     Active Substance: SULFAMETHOXAZOLE\TRIMETHOPRIM
     Indication: Prophylaxis
     Dosage: TIME INTERVAL: 0.33333333 WEEKS: 800-160 MG
     Route: 048
     Dates: start: 20220126
  25. SODIUM BICARBONATE [Concomitant]
     Active Substance: SODIUM BICARBONATE
     Indication: Electrolyte substitution therapy
     Dosage: SODIUM BICARB POWDER, FREQUENCY TEXT: AS NEEDED
     Route: 048
     Dates: start: 20230426
  26. SENOKOT [Concomitant]
     Active Substance: SENNOSIDES
     Indication: Constipation
     Dosage: 1-2 TABLETS AS NEEDED
     Route: 048
     Dates: start: 20230425
  27. DIPHENHYDRAMINE [Concomitant]
     Active Substance: DIPHENHYDRAMINE
     Indication: Chemotherapy side effect prophylaxis
     Dosage: TIME INTERVAL: AS NECESSARY: FREQUENCY TEXT: AS NEEDED
     Route: 048
     Dates: start: 20230310
  28. ACYCLOVIR [Concomitant]
     Active Substance: ACYCLOVIR
     Indication: Antiviral prophylaxis
     Route: 048
     Dates: start: 20220126
  29. GRANISETRON [Concomitant]
     Active Substance: GRANISETRON
     Indication: Nausea
     Dosage: GRANISTRON, FREQUENCY TEXT: ONCE
     Dates: start: 20230502, end: 20230502
  30. GRANISETRON [Concomitant]
     Active Substance: GRANISETRON
     Indication: Nausea
     Dosage: GRANISTRON, FREQUENCY TEXT: ONCE
     Route: 042
     Dates: start: 20230430, end: 20230530
  31. GRANISETRON [Concomitant]
     Active Substance: GRANISETRON
     Indication: Nausea
     Dosage: GRANISTRON, FREQUENCY TEXT: ONCE
     Route: 042
     Dates: start: 20230428, end: 20230428
  32. POTASSIUM CHLORIDE [Concomitant]
     Active Substance: POTASSIUM CHLORIDE
     Indication: Electrolyte substitution therapy
     Dosage: FREQUENCY TEXT: ONCE
     Route: 042
     Dates: start: 20230425, end: 20230425
  33. POTASSIUM CHLORIDE [Concomitant]
     Active Substance: POTASSIUM CHLORIDE
     Indication: Electrolyte substitution therapy
     Dosage: FREQUENCY TEXT: ONCE
     Route: 048
     Dates: start: 20230427, end: 20230427
  34. PIPERACILLIN SODIUM\TAZOBACTAM SODIUM [Concomitant]
     Active Substance: PIPERACILLIN SODIUM\TAZOBACTAM SODIUM
     Indication: Infection
     Route: 042
     Dates: start: 20230217, end: 20230223
  35. PIPERACILLIN SODIUM\TAZOBACTAM SODIUM [Concomitant]
     Active Substance: PIPERACILLIN SODIUM\TAZOBACTAM SODIUM
     Indication: Infection
     Route: 042
     Dates: start: 20230425, end: 20230502
  36. XYLOCAINE VISCOUS [Concomitant]
     Active Substance: LIDOCAINE HYDROCHLORIDE
     Indication: Local anaesthesia
     Dosage: 10-15 ML
     Route: 048
     Dates: start: 20230427
  37. TYLENOL EXTRA STRENGTH [Concomitant]
     Active Substance: ACETAMINOPHEN
     Indication: Pain
     Dosage: TYLENOL ES, FREQUENCY TEXT: AS NEEDED
     Route: 048
     Dates: start: 20230424
  38. GRAVOL [Concomitant]
     Active Substance: DIMENHYDRINATE
     Indication: Nausea
     Dosage: 25-50
     Route: 042
     Dates: start: 20230424
  39. HYDROMORPHONE HCL [Concomitant]
     Active Substance: HYDROMORPHONE HYDROCHLORIDE
     Indication: Pain
     Dosage: FREQUENCY TEXT: EVERY 4 HRS AS NEEDED PERORAL/SC
     Dates: start: 20230425, end: 20230428
  40. CIPROFLOXACIN [Concomitant]
     Active Substance: CIPROFLOXACIN
     Indication: Neutropenia
     Route: 048
     Dates: start: 20230223
  41. MAGNESIUM OXIDE [Concomitant]
     Active Substance: MAGNESIUM OXIDE
     Indication: Mineral supplementation
     Route: 048
     Dates: start: 20230117
  42. ZOFRAN [Concomitant]
     Active Substance: ONDANSETRON HYDROCHLORIDE
     Indication: Nausea
     Dosage: 4-8 MG
     Dates: start: 20230425
  43. ALLOPURINOL [Concomitant]
     Active Substance: ALLOPURINOL
     Indication: Prophylaxis
     Route: 048
     Dates: start: 20230216, end: 20230223
  44. ALLOPURINOL [Concomitant]
     Active Substance: ALLOPURINOL
     Indication: Prophylaxis
     Route: 048
     Dates: start: 20230425
  45. SODIUM CHLORIDE [Concomitant]
     Active Substance: SODIUM CHLORIDE
     Indication: Dehydration
     Dosage: NS - IV FLUID, FREQUENCY TEXT: CONTINUOUS
     Route: 042
     Dates: start: 20230424
  46. OXYGEN [Concomitant]
     Active Substance: OXYGEN
     Indication: Oxygen saturation decreased
     Dosage: O2 TO KEEP SAT }92%?FREQUENCY TEXT: AS NEEDED
     Route: 045
     Dates: start: 20230425
  47. VANCOMYCIN HYDROCHLORIDE [Concomitant]
     Active Substance: VANCOMYCIN HYDROCHLORIDE
     Indication: Antibiotic therapy
     Route: 042
     Dates: start: 20230426, end: 20230427
  48. VORICONAZOLE [Concomitant]
     Active Substance: VORICONAZOLE
     Indication: Antifungal treatment
     Route: 048
     Dates: start: 20230502
  49. VORICONAZOLE [Concomitant]
     Active Substance: VORICONAZOLE
     Indication: Antifungal treatment
     Route: 048
     Dates: start: 20230327, end: 20230410
  50. VASHE [Concomitant]
     Indication: Vulvovaginal injury
     Dosage: VASHE CLEANSER?FREQUENCY TEXT: AS NEEDED SPRAY
  51. TYLENOL [Concomitant]
     Active Substance: ACETAMINOPHEN
     Indication: Chemotherapy side effect prophylaxis
     Dosage: TIME INTERVAL: AS NECESSARY: TYLENOL PLAIN?FREQUENCY TEXT: AS NEEDED
     Route: 048
     Dates: start: 20230310
  52. POLYETHYLENE GLYCOL [Concomitant]
     Active Substance: POLYETHYLENE GLYCOL
     Indication: Constipation
     Dates: start: 20230425
  53. VYXEOS [Concomitant]
     Active Substance: CYTARABINE\DAUNORUBICIN
     Indication: Acute myeloid leukaemia

REACTIONS (2)
  - Hypokalaemia [Not Recovered/Not Resolved]
  - Hypokalaemia [Recovered/Resolved]

NARRATIVE: CASE EVENT DATE: 20230327
